FAERS Safety Report 22831875 (Version 3)
Quarter: 2023Q4

REPORT INFORMATION
  Report Type: Spontaneous
  Country: US (occurrence: US)
  Receive Date: 20230817
  Receipt Date: 20231123
  Transmission Date: 20240110
  Serious: Yes (Hospitalization, Other)
  Sender: FDA-Public Use
  Company Number: US-BRISTOL-MYERS SQUIBB COMPANY-2023-114601

PATIENT
  Age: 67 Year
  Sex: Female

DRUGS (28)
  1. IDHIFA [Suspect]
     Active Substance: ENASIDENIB MESYLATE
     Indication: Acute myeloid leukaemia
     Dosage: DAILY
     Route: 048
     Dates: start: 20230509, end: 20230918
  2. IDHIFA [Suspect]
     Active Substance: ENASIDENIB MESYLATE
     Dosage: DAILY
     Route: 048
     Dates: start: 20230524
  3. ACYCLOVIR [Concomitant]
     Active Substance: ACYCLOVIR
     Indication: Product used for unknown indication
     Dosage: TWICE DAILY
     Route: 048
     Dates: start: 20231108
  4. BARIUM SULFATE [Concomitant]
     Active Substance: BARIUM SULFATE
     Indication: Product used for unknown indication
  5. SODIUM CHLORIDE [Concomitant]
     Active Substance: SODIUM CHLORIDE
     Indication: Product used for unknown indication
     Dosage: Q24H, SCH
     Route: 042
  6. SODIUM CHLORIDE [Concomitant]
     Active Substance: SODIUM CHLORIDE
     Dosage: 2.5 - 10 ML, Q12H SCH
     Route: 042
  7. DEXTROSE\WATER [Concomitant]
     Active Substance: DEXTROSE\WATER
     Indication: Product used for unknown indication
     Dosage: Q24H, SCH
     Route: 042
  8. ENOXAPARIN [Concomitant]
     Active Substance: ENOXAPARIN
     Indication: Product used for unknown indication
     Dosage: DAILY
     Route: 058
  9. INSULIN GLARGINE [Concomitant]
     Active Substance: INSULIN GLARGINE
     Indication: Product used for unknown indication
     Dosage: 10 UNITS, DAILY WITH BREAKFAST
     Route: 058
  10. INSULIN LISPRO [Concomitant]
     Active Substance: INSULIN LISPRO
     Indication: Product used for unknown indication
     Dosage: 1-5 UNITS, NIGHTLY
     Route: 058
  11. INSULIN LISPRO [Concomitant]
     Active Substance: INSULIN LISPRO
     Dosage: 1-5 UNITS, 3X DAILY WITH MEALS
     Route: 058
  12. LEVOTHYROXINE [Concomitant]
     Active Substance: LEVOTHYROXINE
     Indication: Product used for unknown indication
     Route: 048
  13. MAGNESIUM SULFATE [Concomitant]
     Active Substance: MAGNESIUM SULFATE\MAGNESIUM SULFATE HEPTAHYDRATE
     Indication: Product used for unknown indication
     Route: 042
  14. VITAMINS NOS [Concomitant]
     Active Substance: VITAMINS
     Indication: Product used for unknown indication
     Dosage: DAILY
     Route: 048
  15. NYSTATIN [Concomitant]
     Active Substance: NYSTATIN
     Indication: Product used for unknown indication
     Dosage: 500000 UNITS, 4X DAILY
     Route: 048
  16. POTASSIUM CHLORIDE [Concomitant]
     Active Substance: POTASSIUM CHLORIDE
     Indication: Product used for unknown indication
     Route: 042
  17. SERTRALINE [Concomitant]
     Active Substance: SERTRALINE HYDROCHLORIDE
     Indication: Product used for unknown indication
     Dosage: DAILY
     Route: 048
  18. URSODIOL [Concomitant]
     Active Substance: URSODIOL
     Indication: Product used for unknown indication
     Dosage: 3X DAILY
     Route: 048
  19. DEXTROSE [Concomitant]
     Active Substance: DEXTROSE\DEXTROSE MONOHYDRATE
     Indication: Product used for unknown indication
     Dosage: PRN, CONTINUOUS
  20. GLUCAGON [Concomitant]
     Active Substance: GLUCAGON\GLUCAGON HYDROCHLORIDE\WATER
     Indication: Product used for unknown indication
     Dosage: PRN, CONTINUOUS
  21. LOPERAMIDE [Concomitant]
     Active Substance: LOPERAMIDE
     Indication: Product used for unknown indication
     Dosage: PRN, CONTINUOUS
  22. MICONAZOLE [Concomitant]
     Active Substance: MICONAZOLE
     Indication: Product used for unknown indication
     Dosage: PRN, CONTINUOUS
  23. NALOXONE [Concomitant]
     Active Substance: NALOXONE
     Indication: Product used for unknown indication
     Dosage: PRN, CONTINUOUS
  24. ONDANSETRON [Concomitant]
     Active Substance: ONDANSETRON
     Indication: Product used for unknown indication
     Dosage: PRN, CONTINUOUS
  25. OXYCODONE [Concomitant]
     Active Substance: OXYCODONE
     Indication: Product used for unknown indication
     Dosage: IR, PRN, CONTINUOUS
  26. POLYETHYLENE GLYCOL 3350 [Concomitant]
     Active Substance: POLYETHYLENE GLYCOL 3350
     Indication: Product used for unknown indication
     Dosage: PRN, CONTINUOUS
  27. SENNA LEAF [Concomitant]
     Active Substance: SENNA LEAF
     Indication: Product used for unknown indication
     Dosage: PRN, CONTINUOUS
  28. TRAZODONE [Concomitant]
     Active Substance: TRAZODONE HYDROCHLORIDE
     Indication: Product used for unknown indication
     Dosage: PRN, CONTINUOUS

REACTIONS (36)
  - Differentiation syndrome [Recovered/Resolved]
  - Febrile neutropenia [Unknown]
  - Psoas abscess [Unknown]
  - Myositis [Unknown]
  - Atelectasis [Unknown]
  - Pseudomonal bacteraemia [Unknown]
  - Aspergillus test positive [Unknown]
  - Fall [Unknown]
  - Arthralgia [Unknown]
  - Femoral neck fracture [Unknown]
  - Hypokalaemia [Unknown]
  - Confusional state [Unknown]
  - Aphasia [Unknown]
  - Hypothyroidism [Unknown]
  - Ulna fracture [Unknown]
  - Pancytopenia [Unknown]
  - Hypertension [Unknown]
  - Pleural effusion [Unknown]
  - Seroma [Unknown]
  - Haematoma [Unknown]
  - Implant site extravasation [Unknown]
  - Localised infection [Unknown]
  - Aortic aneurysm [Unknown]
  - Pulmonary hypertension [Unknown]
  - Myocardial infarction [Unknown]
  - Trigeminal neuralgia [Unknown]
  - Insomnia [Unknown]
  - Type 2 diabetes mellitus [Unknown]
  - Subdural haematoma [Unknown]
  - Periodontal disease [Unknown]
  - Dental caries [Unknown]
  - Diarrhoea [Unknown]
  - Gastroenteritis [Unknown]
  - Micrococcus infection [Unknown]
  - Alpha haemolytic streptococcal infection [Unknown]
  - Epistaxis [Unknown]

NARRATIVE: CASE EVENT DATE: 20230509
